FAERS Safety Report 10514705 (Version 1)
Quarter: 2014Q4

REPORT INFORMATION
  Report Type: Spontaneous
  Country: IT (occurrence: IT)
  Receive Date: 20141013
  Receipt Date: 20141013
  Transmission Date: 20150528
  Serious: Yes (Other)
  Sender: FDA-Public Use
  Company Number: IT-MYLANLABS-2014M1006864

PATIENT

DRUGS (2)
  1. PAROXETINE [Suspect]
     Active Substance: PAROXETINE\PAROXETINE HYDROCHLORIDE
     Indication: MAJOR DEPRESSION
     Dosage: 20MG AT BEDTIME
     Route: 065
  2. FLUVOXAMINE [Suspect]
     Active Substance: FLUVOXAMINE

REACTIONS (8)
  - Impulsive behaviour [Recovering/Resolving]
  - Insomnia [Recovering/Resolving]
  - Generalised anxiety disorder [Recovering/Resolving]
  - Drug withdrawal syndrome [Recovering/Resolving]
  - Pathological gambling [Recovered/Resolved]
  - Aggression [Recovering/Resolving]
  - Visual impairment [Recovering/Resolving]
  - Paraesthesia [Recovering/Resolving]
